FAERS Safety Report 8168070-5 (Version None)
Quarter: 2012Q1

REPORT INFORMATION
  Report Type: 
  Country: None (occurrence: None)
  Receive Date: 20120227
  Receipt Date: 20120216
  Transmission Date: 20120608
  Serious: Yes (Hospitalization)
  Sender: FDA-Public Use
  Company Number: PHHO2012US002771

PATIENT
  Age: 64 Year
  Sex: Female
  Weight: 86.6 kg

DRUGS (3)
  1. ZOLEDRONIC [Suspect]
     Indication: BREAST CANCER
     Dosage: 4 MG ONCE A MONTH
     Route: 042
     Dates: start: 20110906
  2. VITAMIN D [Concomitant]
     Indication: BREAST CANCER
     Dosage: 400 IU, QD
     Route: 048
     Dates: start: 20110906
  3. CALCIUM [Concomitant]
     Indication: BREAST CANCER
     Dosage: 500 MG, QD
     Route: 048
     Dates: start: 20110906

REACTIONS (1)
  - OSTEONECROSIS OF JAW [None]
